FAERS Safety Report 10385604 (Version 1)
Quarter: 2014Q3

REPORT INFORMATION
  Report Type: Spontaneous
  Country: DE (occurrence: DE)
  Receive Date: 20140814
  Receipt Date: 20140814
  Transmission Date: 20150326
  Serious: Yes (Other)
  Sender: FDA-Public Use
  Company Number: PHHY2014DE097741

PATIENT
  Age: 55 Year
  Sex: Male

DRUGS (6)
  1. GENTAMICIN SULPHATE [Suspect]
     Active Substance: GENTAMICIN SULFATE
     Indication: PNEUMONIA KLEBSIELLA
     Dates: start: 20120608
  2. COLISTIN SULFATE [Suspect]
     Active Substance: COLISTIN SULFATE
     Indication: PNEUMONIA KLEBSIELLA
     Dates: start: 20120608
  3. GENTAMICIN [Suspect]
     Active Substance: GENTAMICIN
     Indication: PNEUMONIA KLEBSIELLA
     Dosage: 7 MG/KG, QD, 5 TO 7 MG/KG ONCE DAILY
     Route: 042
  4. COLISTIN SODIUM METHANESULFONATE [Suspect]
     Active Substance: COLISTIN A SODIUM METHANESULFONATE
     Indication: PNEUMONIA KLEBSIELLA
     Dosage: 3 OT, QID, 2 TO 3 MILLION UNITS QID
     Route: 042
  5. GENTAMICIN SULPHATE GEL [Suspect]
     Active Substance: GENTAMICIN SULFATE
     Indication: PNEUMONIA KLEBSIELLA
     Route: 049
     Dates: start: 20120608
  6. COLISTIN SULFATE GEL [Suspect]
     Active Substance: COLISTIN SULFATE
     Indication: PNEUMONIA KLEBSIELLA
     Route: 049
     Dates: start: 20120608

REACTIONS (2)
  - Multiple-drug resistance [Unknown]
  - Pneumonia klebsiella [Unknown]
